FAERS Safety Report 8063639-0 (Version None)
Quarter: 2012Q1

REPORT INFORMATION
  Report Type: 
  Country: None (occurrence: None)
  Receive Date: 20120123
  Receipt Date: 20120111
  Transmission Date: 20120608
  Serious: Yes (Other)
  Sender: FDA-Public Use
  Company Number: GB-GLAXOSMITHKLINE-B0774662A

PATIENT
  Age: 17 Year
  Sex: Female
  Weight: 53.97 kg

DRUGS (5)
  1. NICOTINE [Concomitant]
     Indication: EX-TOBACCO USER
     Route: 062
     Dates: start: 20111209
  2. DEPO-PROVERA [Concomitant]
     Indication: CONTRACEPTION
     Route: 058
     Dates: start: 20101201
  3. MULTI-VITAMIN [Concomitant]
     Dosage: 1IUAX PER DAY
     Route: 048
     Dates: start: 20111101
  4. IRON [Concomitant]
     Dosage: 1IUAX PER DAY
     Route: 048
     Dates: start: 20111101
  5. NICOTINE [Suspect]
     Indication: EX-TOBACCO USER
     Dosage: 12MG PER DAY
     Dates: start: 20111215, end: 20111222

REACTIONS (1)
  - DYSPNOEA [None]
